FAERS Safety Report 6396825-6 (Version None)
Quarter: 2009Q4

REPORT INFORMATION
  Report Type: 
  Country: None (occurrence: None)
  Receive Date: 20091006
  Receipt Date: 20091006
  Transmission Date: 20100525
  Serious: Yes (Other)
  Sender: FDA-Public Use
  Company Number: None

PATIENT
  Sex: Female

DRUGS (1)
  1. PH7 FLUORIDE RINSE 2 % SODIUM FLUORIDE (PASCAL CO.) PH7 FLUORIDE RINSE [Suspect]
     Indication: DENTAL FLUORIDE THERAPY
     Dosage: 1/2 ONCE @ 6 MONTHS
     Dates: start: 20090901, end: 20090915

REACTIONS (2)
  - CHEST DISCOMFORT [None]
  - DYSPNOEA [None]
